FAERS Safety Report 24123124 (Version 1)
Quarter: 2024Q3

REPORT INFORMATION
  Report Type: Spontaneous
  Country: US (occurrence: US)
  Receive Date: 20240723
  Receipt Date: 20240723
  Transmission Date: 20241017
  Serious: Yes (Other)
  Sender: GLENMARK
  Company Number: US-MLMSERVICE-20240702-PI119597-00117-1

PATIENT

DRUGS (5)
  1. FLUOCINOLONE ACETONIDE [Suspect]
     Active Substance: FLUOCINOLONE ACETONIDE
     Indication: Retinopathy
     Dosage: UNK
     Dates: start: 20220427, end: 20220427
  2. OZURDEX [Suspect]
     Active Substance: DEXAMETHASONE
     Indication: Retinopathy
     Dosage: UNK
     Dates: start: 20211006
  3. OZURDEX [Suspect]
     Active Substance: DEXAMETHASONE
     Dosage: UNK
     Dates: start: 20211020, end: 20211020
  4. OZURDEX [Suspect]
     Active Substance: DEXAMETHASONE
     Dosage: UNK
     Dates: start: 20220223, end: 20220223
  5. OZURDEX [Suspect]
     Active Substance: DEXAMETHASONE
     Dosage: UNK
     Dates: start: 20220804, end: 20220804

REACTIONS (2)
  - Cataract [Recovering/Resolving]
  - Intraocular pressure increased [Recovered/Resolved]

NARRATIVE: CASE EVENT DATE: 20220801
